FAERS Safety Report 8045007-0 (Version None)
Quarter: 2012Q1

REPORT INFORMATION
  Report Type: 
  Country: None (occurrence: None)
  Receive Date: 20120113
  Receipt Date: 20120106
  Transmission Date: 20120608
  Serious: Yes (Hospitalization)
  Sender: FDA-Public Use
  Company Number: SI-ROCHE-1029503

PATIENT
  Sex: Male

DRUGS (9)
  1. CORYOL [Concomitant]
  2. ASPIRIN [Concomitant]
  3. LUCENTIS [Suspect]
     Indication: AGE-RELATED MACULAR DEGENERATION
     Route: 050
     Dates: start: 20110101
  4. ULTOP [Concomitant]
  5. PLAVIX [Concomitant]
  6. LUCENTIS [Suspect]
     Route: 050
     Dates: start: 20110801, end: 20111201
  7. LESCOL XL [Concomitant]
  8. PAROXETINE [Concomitant]
  9. LEVOTHYROXINE SODIUM [Concomitant]

REACTIONS (2)
  - GENERAL PHYSICAL HEALTH DETERIORATION [None]
  - TRANSIENT ISCHAEMIC ATTACK [None]
